FAERS Safety Report 6186008-7 (Version None)
Quarter: 2009Q2

REPORT INFORMATION
  Report Type: 
  Country: None (occurrence: None)
  Receive Date: 20090511
  Receipt Date: 20090428
  Transmission Date: 20091009
  Serious: Yes (Other)
  Sender: FDA-Public Use
  Company Number: TR-JNJFOC-20090407111

PATIENT

DRUGS (1)
  1. REMICADE [Suspect]
     Indication: RHEUMATOID ARTHRITIS
     Dosage: WEEKS 0, 2, 6 AND EVERY 6-8 WEEKS.
     Route: 042

REACTIONS (1)
  - PULMONARY TUBERCULOSIS [None]
